FAERS Safety Report 20187752 (Version 1)
Quarter: 2021Q4

REPORT INFORMATION
  Report Type: Spontaneous
  Country: CA (occurrence: CA)
  Receive Date: 20211215
  Receipt Date: 20211215
  Transmission Date: 20220304
  Serious: Yes (Other)
  Sender: FDA-Public Use
  Company Number: CA-NAPPMUNDI GBR-2021-0093248

PATIENT
  Age: 49 Year
  Sex: Female

DRUGS (17)
  1. MORPHINE SULFATE [Suspect]
     Active Substance: MORPHINE SULFATE
     Indication: Neck pain
     Dosage: 50.0 MG, UNK
     Route: 065
  2. MORPHINE SULFATE [Suspect]
     Active Substance: MORPHINE SULFATE
     Dosage: 30.0 MG, UNK
     Route: 065
  3. MORPHINE SULFATE [Suspect]
     Active Substance: MORPHINE SULFATE
     Dosage: 60.0 MG, UNK
     Route: 065
  4. TYSABRI [Suspect]
     Active Substance: NATALIZUMAB
     Indication: Multiple sclerosis
     Dosage: 300.0 MG, 1 EVERY 4 WEEKS
     Route: 042
  5. TYSABRI [Suspect]
     Active Substance: NATALIZUMAB
     Dosage: 300 MG, 1 EVERY 4 WEEKS
     Route: 042
  6. TYSABRI [Suspect]
     Active Substance: NATALIZUMAB
     Dosage: 300 MG, 1 EVERY 4 WEEKS
     Route: 042
  7. TYSABRI [Suspect]
     Active Substance: NATALIZUMAB
     Dosage: UNKNOWN
     Route: 042
  8. AMANTADINE [Concomitant]
     Active Substance: AMANTADINE
     Indication: Product used for unknown indication
     Dosage: UNK
     Route: 065
  9. CITALOPRAM [Concomitant]
     Active Substance: CITALOPRAM HYDROBROMIDE
     Indication: Product used for unknown indication
     Dosage: UNK
     Route: 065
  10. CYMBALTA [Concomitant]
     Active Substance: DULOXETINE HYDROCHLORIDE
     Indication: Product used for unknown indication
     Dosage: UNK
     Route: 065
  11. DANTRIUM [Concomitant]
     Active Substance: DANTROLENE SODIUM
     Indication: Product used for unknown indication
     Dosage: UNK
     Route: 065
  12. DESYREL [Concomitant]
     Active Substance: TRAZODONE HYDROCHLORIDE
     Indication: Product used for unknown indication
     Dosage: UNK
     Route: 065
  13. GABAPENTIN [Concomitant]
     Active Substance: GABAPENTIN
     Indication: Product used for unknown indication
     Dosage: UNK
     Route: 065
  14. KADIAN [Concomitant]
     Active Substance: MORPHINE SULFATE
     Indication: Product used for unknown indication
     Dosage: UNK
     Route: 065
  15. RITALIN [Concomitant]
     Active Substance: METHYLPHENIDATE HYDROCHLORIDE
     Indication: Product used for unknown indication
     Dosage: UNK
     Route: 065
  16. STATEX                             /00036302/ [Concomitant]
     Indication: Product used for unknown indication
     Dosage: 5.0 MG, UNK
     Route: 065
  17. ZOPICLONE [Concomitant]
     Active Substance: ZOPICLONE
     Indication: Product used for unknown indication
     Dosage: UNK
     Route: 065

REACTIONS (28)
  - Thermal burn [Not Recovered/Not Resolved]
  - Acne [Not Recovered/Not Resolved]
  - Arthralgia [Not Recovered/Not Resolved]
  - Asthenia [Not Recovered/Not Resolved]
  - Balance disorder [Not Recovered/Not Resolved]
  - Bursitis [Not Recovered/Not Resolved]
  - Constipation [Not Recovered/Not Resolved]
  - Corneal disorder [Not Recovered/Not Resolved]
  - Corneal graft rejection [Not Recovered/Not Resolved]
  - Depressed mood [Not Recovered/Not Resolved]
  - Diarrhoea [Not Recovered/Not Resolved]
  - Dizziness [Not Recovered/Not Resolved]
  - Dysphagia [Not Recovered/Not Resolved]
  - Dysphonia [Not Recovered/Not Resolved]
  - Fall [Not Recovered/Not Resolved]
  - Fatigue [Not Recovered/Not Resolved]
  - Feeling hot [Not Recovered/Not Resolved]
  - Hot flush [Not Recovered/Not Resolved]
  - Hunger [Not Recovered/Not Resolved]
  - Lacrimation increased [Not Recovered/Not Resolved]
  - Nausea [Not Recovered/Not Resolved]
  - Neck pain [Not Recovered/Not Resolved]
  - Pain in extremity [Not Recovered/Not Resolved]
  - Persistent corneal epithelial defect [Not Recovered/Not Resolved]
  - Tendonitis [Not Recovered/Not Resolved]
  - Visual impairment [Not Recovered/Not Resolved]
  - Weight decreased [Not Recovered/Not Resolved]
  - Weight increased [Not Recovered/Not Resolved]
